FAERS Safety Report 6913357-4 (Version None)
Quarter: 2010Q3

REPORT INFORMATION
  Report Type: 
  Country: None (occurrence: None)
  Receive Date: 20100809
  Receipt Date: 20100728
  Transmission Date: 20110219
  Serious: Yes (Other)
  Sender: FDA-Public Use
  Company Number: US-JNJFOC-20100708772

PATIENT
  Sex: Female

DRUGS (2)
  1. REMICADE [Suspect]
     Indication: RHEUMATOID ARTHRITIS
     Route: 042
  2. REMICADE [Suspect]
     Route: 042

REACTIONS (13)
  - BACK PAIN [None]
  - FLUSHING [None]
  - HEART RATE DECREASED [None]
  - HYPERHIDROSIS [None]
  - HYPERTENSION [None]
  - INFECTION [None]
  - INFUSION RELATED REACTION [None]
  - JOINT SWELLING [None]
  - LOCAL SWELLING [None]
  - MUSCULAR WEAKNESS [None]
  - OROPHARYNGEAL DISCOMFORT [None]
  - PARAESTHESIA ORAL [None]
  - URINE ODOUR ABNORMAL [None]
